FAERS Safety Report 12179923 (Version 3)
Quarter: 2016Q2

REPORT INFORMATION
  Report Type: Report from Study
  Country: US (occurrence: US)
  Receive Date: 20160314
  Receipt Date: 20160412
  Transmission Date: 20160815
  Serious: Yes (Hospitalization)
  Sender: FDA-Public Use
  Company Number: US-GILEAD-2016-0202212

PATIENT
  Age: 88 Year
  Sex: Female

DRUGS (11)
  1. ASPIRIN                            /00002701/ [Concomitant]
     Active Substance: ASPIRIN
  2. CAL-MAG                            /07431301/ [Concomitant]
  3. ZOVIRAX [Concomitant]
     Active Substance: ACYCLOVIR
  4. CINNAMON                           /01647501/ [Concomitant]
     Active Substance: CINNAMON
  5. IDELALISIB [Suspect]
     Active Substance: IDELALISIB
     Indication: CHRONIC LYMPHOCYTIC LEUKAEMIA
     Dosage: 150 MG, BID
     Route: 048
     Dates: start: 20151113, end: 20160215
  6. TOUJEO [Concomitant]
     Active Substance: INSULIN GLARGINE
  7. ZESTRIL [Concomitant]
     Active Substance: LISINOPRIL
  8. SYNTHROID [Concomitant]
     Active Substance: LEVOTHYROXINE SODIUM
  9. LOPRESSOR [Concomitant]
     Active Substance: METOPROLOL TARTRATE
  10. PRILOSEC [Concomitant]
     Active Substance: OMEPRAZOLE MAGNESIUM
  11. FISH OIL [Concomitant]
     Active Substance: FISH OIL

REACTIONS (8)
  - Vomiting [Recovered/Resolved]
  - Gastric disorder [Unknown]
  - Diarrhoea [Not Recovered/Not Resolved]
  - Asthenia [Not Recovered/Not Resolved]
  - Fatigue [Not Recovered/Not Resolved]
  - Drug eruption [Recovering/Resolving]
  - Dehydration [Unknown]
  - Hypersensitivity [Unknown]

NARRATIVE: CASE EVENT DATE: 201602
